FAERS Safety Report 5358477-3 (Version None)
Quarter: 2007Q2

REPORT INFORMATION
  Report Type: 
  Country: None (occurrence: None)
  Receive Date: 20070601
  Receipt Date: 20070219
  Transmission Date: 20071010
  Serious: No
  Sender: FDA-Public Use
  Company Number: US-1160990

PATIENT
  Age: 56 Year
  Sex: Female
  Weight: 47.6277 kg

DRUGS (1)
  1. NEVANAC [Suspect]
     Indication: MACULAR OEDEMA
     Dosage: (1 GTT GTTS 1 TID; OS OPHTHALMIC)
     Route: 047
     Dates: start: 20070208

REACTIONS (1)
  - CONDITION AGGRAVATED [None]
